FAERS Safety Report 11589244 (Version 1)
Quarter: 2015Q4

REPORT INFORMATION
  Report Type: Spontaneous
  Country: DE (occurrence: DE)
  Receive Date: 20151002
  Receipt Date: 20151002
  Transmission Date: 20160304
  Serious: Yes (Other)
  Sender: FDA-Public Use
  Company Number: GXKR2015DE004550

PATIENT

DRUGS (5)
  1. MEMANTINHYDROCHLORIDE BETA [Suspect]
     Active Substance: MEMANTINE HYDROCHLORIDE
     Dosage: 10 MG, QD
     Route: 048
  2. DONEPEZIL. [Suspect]
     Active Substance: DONEPEZIL
     Indication: DEMENTIA
     Dosage: 10 MG, QD
     Route: 048
     Dates: start: 20150828, end: 20150918
  3. MEMANTINHYDROCHLORIDE BETA [Suspect]
     Active Substance: MEMANTINE HYDROCHLORIDE
     Indication: DEMENTIA
     Dosage: 5 MG, QD
     Route: 048
     Dates: start: 20150828
  4. MEMANTINHYDROCHLORIDE BETA [Suspect]
     Active Substance: MEMANTINE HYDROCHLORIDE
     Dosage: 20 MG, QD
     Route: 048
  5. MEMANTINHYDROCHLORIDE BETA [Suspect]
     Active Substance: MEMANTINE HYDROCHLORIDE
     Dosage: 15 MG, QD
     Route: 048

REACTIONS (5)
  - Disorientation [Unknown]
  - Dysstasia [Unknown]
  - Tremor [Unknown]
  - Paraesthesia [Unknown]
  - Apathy [Unknown]
